FAERS Safety Report 15026605 (Version 5)
Quarter: 2019Q2

REPORT INFORMATION
  Report Type: Report from Study
  Country: JP (occurrence: JP)
  Receive Date: 20180618
  Receipt Date: 20190409
  Transmission Date: 20190711
  Serious: Yes (Death, Life-Threatening)
  Sender: FDA-Public Use
  Company Number: JP-BEH-2018091399

PATIENT
  Age: 82 Year
  Sex: Male
  Weight: 55.4 kg

DRUGS (16)
  1. POTASSIUM CHLORIDE. [Concomitant]
     Active Substance: POTASSIUM CHLORIDE
     Indication: ELECTROLYTE IMBALANCE
     Dosage: UNK
     Route: 065
     Dates: start: 20180331, end: 20180331
  2. FENTANYL. [Concomitant]
     Active Substance: FENTANYL
     Indication: ANALGESIC THERAPY
     Dosage: UNK
     Route: 065
     Dates: start: 20180329, end: 20180329
  3. TRANSAMIN [Concomitant]
     Active Substance: TRANEXAMIC ACID
     Indication: HAEMORRHAGIC DIATHESIS
     Dosage: UNK
     Route: 065
     Dates: start: 20180330, end: 20180330
  4. PROPOFOL. [Concomitant]
     Active Substance: PROPOFOL
     Indication: SEDATIVE THERAPY
     Dosage: UNK
     Route: 065
     Dates: start: 20180329, end: 20180329
  5. WARFARIN [Concomitant]
     Active Substance: WARFARIN
     Indication: AORTIC DISSECTION
  6. BERIPLEX P/N [Suspect]
     Active Substance: COAGULATION FACTOR IX HUMAN\COAGULATION FACTOR VII HUMAN\COAGULATION FACTOR X HUMAN\PROTEIN C\PROTEIN S HUMAN\PROTHROMBIN
     Indication: SUBARACHNOID HAEMORRHAGE
  7. ADONA                              /00056903/ [Concomitant]
     Active Substance: CARBAZOCHROME SODIUM SULFONATE
     Indication: HAEMORRHAGIC DIATHESIS
     Dosage: UNK
     Route: 065
     Dates: start: 20180330, end: 20180330
  8. CRESTOR [Concomitant]
     Active Substance: ROSUVASTATIN CALCIUM
     Route: 048
  9. VITAMEDIN                          /00176001/ [Concomitant]
     Indication: NUTRITIONAL SUPPLEMENTATION
     Dosage: UNK
     Route: 065
     Dates: start: 20180329, end: 20180331
  10. OMEPRAZOLE. [Concomitant]
     Active Substance: OMEPRAZOLE
     Indication: EROSIVE OESOPHAGITIS
     Dosage: UNK
     Route: 065
     Dates: start: 20180329, end: 20180403
  11. BERIPLEX P/N [Suspect]
     Active Substance: COAGULATION FACTOR IX HUMAN\COAGULATION FACTOR VII HUMAN\COAGULATION FACTOR X HUMAN\PROTEIN C\PROTEIN S HUMAN\PROTHROMBIN
     Indication: HAEMORRHAGE
     Dosage: 1500 IU, SINGLE
     Route: 042
     Dates: start: 20180329, end: 20180329
  12. GLYCEOL                            /00744501/ [Concomitant]
     Active Substance: GLYCERIN
     Indication: BRAIN OEDEMA
     Dosage: UNK
     Route: 065
     Dates: start: 20180402, end: 20180403
  13. NORADRENALINE                      /00127501/ [Concomitant]
     Active Substance: NOREPINEPHRINE
     Indication: SHOCK
     Dosage: UNK
     Route: 065
     Dates: start: 20180401, end: 20180403
  14. HUMULIN NOS [Concomitant]
     Active Substance: INSULIN HUMAN
     Indication: DIABETES MELLITUS MANAGEMENT
     Dosage: UNK
     Route: 065
     Dates: start: 20180402, end: 20180403
  15. SULBACILLIN [Concomitant]
     Active Substance: AMPICILLIN SODIUM\SULBACTAM SODIUM
     Indication: BACTERIAL INFECTION
     Dosage: UNK
     Route: 065
     Dates: start: 20180330, end: 20180402
  16. WARFARIN [Concomitant]
     Active Substance: WARFARIN
     Indication: ANGINA PECTORIS
     Dosage: 2 MG, QD
     Route: 048
     Dates: start: 20120213, end: 20180306

REACTIONS (1)
  - Subarachnoid haemorrhage [Fatal]

NARRATIVE: CASE EVENT DATE: 20180330
